FAERS Safety Report 25219107 (Version 1)
Quarter: 2025Q2

REPORT INFORMATION
  Report Type: Spontaneous
  Country: US (occurrence: US)
  Receive Date: 20250421
  Receipt Date: 20250421
  Transmission Date: 20250716
  Serious: No
  Sender: ROCHE
  Company Number: US-ROCHE-10000222253

PATIENT
  Age: 70 Year
  Sex: Male
  Weight: 122.47 kg

DRUGS (2)
  1. FUZEON [Suspect]
     Active Substance: ENFUVIRTIDE
     Indication: HIV infection
     Route: 058
     Dates: end: 20250220
  2. ETRAVIRINE [Concomitant]
     Active Substance: ETRAVIRINE
     Route: 048

REACTIONS (4)
  - COVID-19 [Recovered/Resolved]
  - Thyroid disorder [Not Recovered/Not Resolved]
  - Pain [Not Recovered/Not Resolved]
  - Type 2 diabetes mellitus [Not Recovered/Not Resolved]

NARRATIVE: CASE EVENT DATE: 20230701
